FAERS Safety Report 4951412-9 (Version None)
Quarter: 2006Q1

REPORT INFORMATION
  Report Type: 
  Country: None (occurrence: None)
  Receive Date: 20060317
  Receipt Date: 20060302
  Transmission Date: 20060701
  Serious: Yes (Hospitalization)
  Sender: FDA-Public Use
  Company Number: US200603000716

PATIENT
  Age: 59 Year
  Sex: Male
  Weight: 68.0396 kg

DRUGS (6)
  1. HUMALOG [Suspect]
     Indication: DIABETES MELLITUS
     Dosage: UNK, UNK, AS NEEDED,
  2. INSULIN, ANIMAL (INSULIN, ANIMAL) VIAL [Suspect]
     Indication: DIABETES MELLITUS
  3. ZYRTEC /GFR/ (CETIRIZINE HYDROCHLORIDE) [Concomitant]
  4. PLAVIX [Concomitant]
  5. ASA (ASPIRIN (ACETYLSALICYLIC ACID) CAPSULE [Concomitant]
  6. SINGULAIR ^MERCK^ (MONTELUKAST SODIUM) [Concomitant]

REACTIONS (11)
  - ARTHRALGIA [None]
  - BLOOD GLUCOSE INCREASED [None]
  - CIRCUMSTANCE OR INFORMATION CAPABLE OF LEADING TO MEDICATION ERROR [None]
  - DRUG INEFFECTIVE [None]
  - FEMORAL ARTERY OCCLUSION [None]
  - GLAUCOMA [None]
  - HYPERTENSION [None]
  - LEG AMPUTATION [None]
  - PAIN [None]
  - PERIPHERAL VASCULAR DISORDER [None]
  - PHARMACEUTICAL PRODUCT COMPLAINT [None]
